FAERS Safety Report 4835842-1 (Version None)
Quarter: 2005Q4

REPORT INFORMATION
  Report Type: 
  Country: None (occurrence: None)
  Receive Date: 20051118
  Receipt Date: 20051110
  Transmission Date: 20060501
  Serious: Yes (Hospitalization, Other)
  Sender: FDA-Public Use
  Company Number: 2005118779

PATIENT
  Age: 49 Year
  Sex: Female
  Weight: 78.0187 kg

DRUGS (8)
  1. CELEBREX [Suspect]
     Indication: ARTHRITIS
     Dosage: 200 MG, BID OR TID
     Dates: start: 20030823
  2. CELEBREX [Suspect]
     Indication: INTERVERTEBRAL DISC DEGENERATION
     Dosage: 200 MG, BID OR TID
     Dates: start: 20030823
  3. CELEBREX [Suspect]
     Indication: INTERVERTEBRAL DISC PROTRUSION
     Dosage: 200 MG, BID OR TID
     Dates: start: 20030823
  4. LIPITOR [Suspect]
     Indication: HYPERLIPIDAEMIA
     Dates: start: 20020201
  5. GLUCOTROL [Concomitant]
  6. FLEXERIL [Concomitant]
  7. IBUPROFEN [Concomitant]
  8. ESTRADIOL [Concomitant]

REACTIONS (3)
  - CHEST PAIN [None]
  - LOSS OF EMPLOYMENT [None]
  - PAIN IN EXTREMITY [None]
